FAERS Safety Report 7979142-X (Version None)
Quarter: 2011Q4

REPORT INFORMATION
  Report Type: 
  Country: None (occurrence: None)
  Receive Date: 20111213
  Receipt Date: 20111213
  Transmission Date: 20120403
  Serious: Yes (Life-Threatening)
  Sender: FDA-Public Use
  Company Number: None

PATIENT
  Age: 65 Year
  Sex: Female
  Weight: 56.246 kg

DRUGS (8)
  1. ADVAIR DISKUS 100/50 [Concomitant]
  2. LEVOTHYROXINE SODIUM [Concomitant]
  3. SERTRALINE HYDROCHLORIDE [Concomitant]
  4. METOPROLOL TARTRATE [Concomitant]
  5. PROPOFOL [Suspect]
     Indication: COLONOSCOPY
     Dosage: 25-50MG IV
     Route: 042
     Dates: start: 20111118
  6. PROPOFOL [Suspect]
     Indication: SEDATIVE THERAPY
     Dosage: 25-50MG IV
     Route: 042
     Dates: start: 20111118
  7. CYCLOBENZAPRINE [Concomitant]
  8. LOVASTATIN [Concomitant]

REACTIONS (1)
  - CARDIAC ARREST [None]
